FAERS Safety Report 7552810-X (Version None)
Quarter: 2011Q2

REPORT INFORMATION
  Report Type: 
  Country: None (occurrence: None)
  Receive Date: 20110616
  Receipt Date: 20110613
  Transmission Date: 20111010
  Serious: Yes (Other)
  Sender: FDA-Public Use
  Company Number: US-PFIZER INC-2010054604

PATIENT
  Sex: Female
  Weight: 55.3 kg

DRUGS (1)
  1. PREMARIN [Suspect]
     Indication: VULVOVAGINAL DRYNESS
     Dosage: 2 G, 1X/DAY
     Route: 067
     Dates: start: 20100101, end: 20101201

REACTIONS (6)
  - NEPHROLITHIASIS [None]
  - ABDOMINAL TENDERNESS [None]
  - BACK PAIN [None]
  - MALAISE [None]
  - CYSTITIS [None]
  - ABDOMINAL DISTENSION [None]
